FAERS Safety Report 15130468 (Version 3)
Quarter: 2018Q3

REPORT INFORMATION
  Report Type: Report from Study
  Country: US (occurrence: US)
  Receive Date: 20180711
  Receipt Date: 20180822
  Transmission Date: 20181010
  Serious: Yes (Other)
  Sender: FDA-Public Use
  Company Number: US-BAYER-2018-114752

PATIENT
  Age: 65 Year
  Sex: Male

DRUGS (1)
  1. STIVARGA [Suspect]
     Active Substance: REGORAFENIB
     Indication: GASTROINTESTINAL STROMAL CANCER
     Dosage: 80 MG, ONCE A DAY (21 ON, 7 OFF)
     Route: 048
     Dates: start: 20180612, end: 20180704

REACTIONS (14)
  - Neuropathy peripheral [None]
  - Mobility decreased [Recovering/Resolving]
  - Dysphonia [Not Recovered/Not Resolved]
  - Temperature intolerance [None]
  - Rash macular [Recovered/Resolved]
  - Pain of skin [Recovered/Resolved]
  - Oropharyngeal pain [Not Recovered/Not Resolved]
  - Palmar-plantar erythrodysaesthesia syndrome [Recovered/Resolved]
  - Product use complaint [Not Recovered/Not Resolved]
  - Off label use [None]
  - Dyspnoea [None]
  - Constipation [Recovering/Resolving]
  - Dry mouth [Not Recovered/Not Resolved]
  - Pre-existing condition improved [Recovered/Resolved]

NARRATIVE: CASE EVENT DATE: 2018
